FAERS Safety Report 6160101-7 (Version None)
Quarter: 2009Q2

REPORT INFORMATION
  Report Type: 
  Country: None (occurrence: None)
  Receive Date: 20090420
  Receipt Date: 20090409
  Transmission Date: 20091009
  Serious: Yes (Hospitalization)
  Sender: FDA-Public Use
  Company Number: FR-AVENTIS-200911486FR

PATIENT
  Age: 74 Year
  Sex: Male

DRUGS (7)
  1. RIFADIN [Suspect]
     Route: 042
     Dates: start: 20090225, end: 20090325
  2. VANCOMYCINE SANDOZ [Suspect]
     Route: 042
     Dates: start: 20090225, end: 20090325
  3. ATARAX [Concomitant]
     Indication: DRUG USE FOR UNKNOWN INDICATION
     Route: 048
     Dates: start: 20090321, end: 20090323
  4. AMARYL [Concomitant]
     Indication: DRUG USE FOR UNKNOWN INDICATION
     Route: 048
  5. BURINEX [Concomitant]
     Indication: DRUG USE FOR UNKNOWN INDICATION
     Route: 048
  6. CRESTOR [Concomitant]
     Indication: DRUG USE FOR UNKNOWN INDICATION
     Route: 048
  7. REMINYL                            /00382001/ [Concomitant]
     Indication: DRUG USE FOR UNKNOWN INDICATION
     Route: 048

REACTIONS (7)
  - CHILLS [None]
  - DRUG RASH WITH EOSINOPHILIA AND SYSTEMIC SYMPTOMS [None]
  - EOSINOPHILIA [None]
  - OEDEMA [None]
  - PYREXIA [None]
  - RASH PUSTULAR [None]
  - TRANSAMINASES INCREASED [None]
